FAERS Safety Report 9880979 (Version 1)
Quarter: 2014Q1

REPORT INFORMATION
  Report Type: Spontaneous
  Country: US (occurrence: US)
  Receive Date: 20140207
  Receipt Date: 20140207
  Transmission Date: 20141002
  Serious: Yes (Other)
  Sender: FDA-Public Use
  Company Number: US-NOVOPROD-399109

PATIENT
  Age: 58 Year
  Sex: Male
  Weight: 92.97 kg

DRUGS (2)
  1. LEVEMIR FLEXPEN [Suspect]
     Indication: TYPE 2 DIABETES MELLITUS
     Dosage: 5 UNITS ONCE DAILY AT NIGHT
     Route: 058
  2. HUMALOG [Suspect]
     Indication: TYPE 2 DIABETES MELLITUS
     Dosage: SLIDING SCALE THREE TIMES DAILY
     Route: 058

REACTIONS (2)
  - Pancreatic carcinoma [Not Recovered/Not Resolved]
  - Hepatic cancer [Not Recovered/Not Resolved]
